FAERS Safety Report 6734737-6 (Version None)
Quarter: 2010Q2

REPORT INFORMATION
  Report Type: 
  Country: None (occurrence: None)
  Receive Date: 20100519
  Receipt Date: 20100519
  Transmission Date: 20101027
  Serious: No
  Sender: FDA-Public Use
  Company Number: None

PATIENT
  Sex: Female
  Weight: 57.1532 kg

DRUGS (1)
  1. HYDROXYUREA [Suspect]
     Indication: ESSENTIAL THROMBOCYTHAEMIA
     Dosage: 500 MG 2 AM 1 PM
     Dates: start: 20100317, end: 20100404

REACTIONS (3)
  - CHILLS [None]
  - PLATELET COUNT DECREASED [None]
  - PYREXIA [None]
